FAERS Safety Report 9917446 (Version 2)
Quarter: 2014Q2

REPORT INFORMATION
  Report Type: Spontaneous
  Country: US (occurrence: US)
  Receive Date: 20140221
  Receipt Date: 20140409
  Transmission Date: 20141212
  Serious: No
  Sender: FDA-Public Use
  Company Number: US-PFIZER INC-2014048055

PATIENT
  Age: 37 Year
  Sex: Female
  Weight: 79.37 kg

DRUGS (2)
  1. ADVIL [Suspect]
     Indication: PAIN IN EXTREMITY
     Dosage: TWO TABLETS THREE TIMES A DAY
     Route: 048
     Dates: start: 20140216, end: 20140217
  2. ADVIL [Suspect]
     Indication: NASOPHARYNGITIS

REACTIONS (1)
  - Drug ineffective for unapproved indication [Unknown]
